FAERS Safety Report 18722105 (Version 2)
Quarter: 2021Q1

REPORT INFORMATION
  Report Type: Report from Study
  Country: US (occurrence: US)
  Receive Date: 20210111
  Receipt Date: 20210122
  Transmission Date: 20210419
  Serious: Yes (Hospitalization, Other)
  Sender: FDA-Public Use
  Company Number: US-EMD SERONO-9211312

PATIENT
  Sex: Female

DRUGS (2)
  1. IBUPROFEN. [Concomitant]
     Active Substance: IBUPROFEN
     Indication: PRODUCT USED FOR UNKNOWN INDICATION
  2. REBIF [Suspect]
     Active Substance: INTERFERON BETA-1A
     Indication: PRODUCT USED FOR UNKNOWN INDICATION
     Dosage: REBIF PREFILLED SYRINGE
     Route: 058
     Dates: start: 20140520

REACTIONS (6)
  - Injection site indentation [Unknown]
  - Injection site scab [Unknown]
  - Lack of injection site rotation [Unknown]
  - Myocardial infarction [Unknown]
  - Feeling abnormal [Unknown]
  - Cellulitis [Unknown]
